FAERS Safety Report 22588305 (Version 1)
Quarter: 2023Q2

REPORT INFORMATION
  Report Type: Spontaneous
  Country: GB (occurrence: GB)
  Receive Date: 20230612
  Receipt Date: 20230612
  Transmission Date: 20230721
  Serious: Yes (Other)
  Sender: FDA-Public Use
  Company Number: GB-MHRA-INP09F16035-EC9F-4732-85E8-CD78A6E6222A

PATIENT
  Age: 30 Year
  Sex: Female
  Weight: 49 kg

DRUGS (3)
  1. AMOXICILLIN [Suspect]
     Active Substance: AMOXICILLIN
     Indication: Pain in jaw
     Dosage: 500 MILLIGRAM
     Route: 048
     Dates: start: 20230525, end: 20230525
  2. SERTRALINE [Concomitant]
     Active Substance: SERTRALINE HYDROCHLORIDE
     Indication: Product used for unknown indication
     Dosage: 100 MILLIGRAM, ONCE A DAY
     Route: 065
     Dates: start: 20230403
  3. ORTHO EVRA [Concomitant]
     Active Substance: ETHINYL ESTRADIOL\NORELGESTROMIN
     Indication: Product used for unknown indication
     Dosage: 1 DOSAGE FORM, EVERY WEEK,FOR 3 WEEKS FOLLOWED BY 1 PATCH FREE WEEK.
     Route: 065
     Dates: start: 20230516

REACTIONS (1)
  - Angioedema [Recovered/Resolved]

NARRATIVE: CASE EVENT DATE: 20230525
